FAERS Safety Report 6062540-1 (Version None)
Quarter: 2009Q1

REPORT INFORMATION
  Report Type: 
  Country: None (occurrence: None)
  Receive Date: 20090202
  Receipt Date: 20090202
  Transmission Date: 20090719
  Serious: Yes (Death)
  Sender: FDA-Public Use
  Company Number: None

PATIENT
  Sex: Female
  Weight: 66.6788 kg

DRUGS (1)
  1. FLUOXETINE [Suspect]
     Indication: DEPRESSION
     Dosage: 10 MG ONCE A DAY PO
     Route: 048
     Dates: start: 20081220, end: 20081222

REACTIONS (4)
  - COMPLETED SUICIDE [None]
  - GUN SHOT WOUND [None]
  - HEAD INJURY [None]
  - INTENTIONAL SELF-INJURY [None]
